FAERS Safety Report 5077384-7 (Version None)
Quarter: 2006Q3

REPORT INFORMATION
  Report Type: 
  Country: None (occurrence: None)
  Receive Date: 20060810
  Receipt Date: 20060208
  Transmission Date: 20061208
  Serious: Yes (Other)
  Sender: FDA-Public Use
  Company Number: US-GLAXOSMITHKLINE-A0592845A

PATIENT
  Age: 43 Year
  Sex: Female

DRUGS (2)
  1. PAROXETINE HCL [Suspect]
     Indication: BIPOLAR DISORDER
     Dosage: 40MG PER DAY
     Route: 048
     Dates: start: 20030601, end: 20040501
  2. PAXIL [Concomitant]
     Indication: BIPOLAR DISORDER
     Dosage: 20MG PER DAY
     Route: 048
     Dates: start: 20050101

REACTIONS (1)
  - MANIA [None]
